FAERS Safety Report 8809967 (Version 3)
Quarter: 2012Q4

REPORT INFORMATION
  Report Type: 
  Country: US (occurrence: US)
  Receive Date: 20120926
  Receipt Date: 20121030
  Transmission Date: 20130627
  Serious: No
  Sender: FDA-Public Use
  Company Number: US-009507513-1209USA006411

PATIENT
  Sex: Female

DRUGS (5)
  1. PEGINTRON [Suspect]
     Indication: HEPATITIS C
     Dosage: UNK
     Route: 058
     Dates: start: 20120709, end: 2012
  2. PEGINTRON [Suspect]
     Dosage: UNK
     Route: 058
     Dates: start: 2012
  3. REBETOL [Suspect]
     Indication: HEPATITIS C
     Dosage: UNK
     Route: 048
     Dates: start: 20120709, end: 2012
  4. REBETOL [Suspect]
     Dosage: UNK
     Route: 048
     Dates: start: 2012
  5. TELAPREVIR [Concomitant]
     Indication: HEPATITIS C
     Dosage: UNK
     Dates: start: 20120709

REACTIONS (8)
  - Glossodynia [Unknown]
  - Pain [Unknown]
  - Vomiting [Unknown]
  - White blood cell count decreased [Unknown]
  - Rash [Unknown]
  - Nausea [Unknown]
  - Asthenia [Unknown]
  - White blood cell count decreased [Unknown]
